FAERS Safety Report 5924929-8 (Version None)
Quarter: 2008Q4

REPORT INFORMATION
  Report Type: 
  Country: None (occurrence: None)
  Receive Date: 20081020
  Receipt Date: 20081020
  Transmission Date: 20090506
  Serious: Yes (Hospitalization)
  Sender: FDA-Public Use
  Company Number: None

PATIENT
  Age: 4 Year
  Sex: Female

DRUGS (1)
  1. CEFDINIR [Suspect]
     Indication: SINUSITIS
     Dosage: PO
     Route: 048

REACTIONS (1)
  - SERUM SICKNESS [None]
